FAERS Safety Report 7031088-X (Version None)
Quarter: 2010Q4

REPORT INFORMATION
  Report Type: 
  Country: None (occurrence: None)
  Receive Date: 20101006
  Receipt Date: 20100928
  Transmission Date: 20110411
  Serious: Yes (Death)
  Sender: FDA-Public Use
  Company Number: US-GILEAD-2010-0032169

PATIENT
  Sex: Female
  Weight: 69.008 kg

DRUGS (10)
  1. LETAIRIS [Suspect]
     Indication: PULMONARY ARTERIAL HYPERTENSION
     Route: 048
     Dates: start: 20090708
  2. HYDROCODONE BITARTRATE AND ACETAMINOPHEN [Concomitant]
  3. PROZAC [Concomitant]
  4. BUSPIRONE HCL [Concomitant]
  5. GABAPENTIN [Concomitant]
  6. ATROVENT [Concomitant]
  7. TRAZODONE HCL [Concomitant]
  8. LITHIUM [Concomitant]
  9. FAMOTIDINE [Concomitant]
  10. ASPIRIN [Concomitant]

REACTIONS (1)
  - DEATH [None]
